FAERS Safety Report 8341843-1 (Version None)
Quarter: 2012Q2

REPORT INFORMATION
  Report Type: 
  Country: None (occurrence: None)
  Receive Date: 20120507
  Receipt Date: 20120426
  Transmission Date: 20120825
  Serious: Yes (Hospitalization)
  Sender: FDA-Public Use
  Company Number: US-ACTELION-A-NJ2012-59717

PATIENT

DRUGS (3)
  1. TRACLEER [Suspect]
     Indication: PULMONARY ARTERIAL HYPERTENSION
     Dosage: UNK
     Route: 048
     Dates: start: 20101228
  2. OXYGEN [Concomitant]
  3. VENTAVIS [Suspect]
     Indication: PULMONARY ARTERIAL HYPERTENSION
     Dosage: UNK
     Route: 055
     Dates: start: 20111122

REACTIONS (9)
  - PALPITATIONS [None]
  - THROAT IRRITATION [None]
  - BLOOD GLUCOSE DECREASED [None]
  - HEART RATE INCREASED [None]
  - COUGH [None]
  - FATIGUE [None]
  - PARAESTHESIA [None]
  - HYPOTENSION [None]
  - STOMATITIS [None]
